FAERS Safety Report 6608420-1 (Version None)
Quarter: 2010Q1

REPORT INFORMATION
  Report Type: 
  Country: None (occurrence: None)
  Receive Date: 20100301
  Receipt Date: 20100223
  Transmission Date: 20100710
  Serious: Yes (Death, Other)
  Sender: FDA-Public Use
  Company Number: TR-ELI_LILLY_AND_COMPANY-TR201002006456

PATIENT
  Sex: Male

DRUGS (4)
  1. HUMULIN R [Suspect]
     Indication: DIABETES MELLITUS
     Dosage: 12 IU, EACH MORNING
     Route: 058
     Dates: start: 20080801
  2. HUMULIN R [Suspect]
     Dosage: 22 IU, EACH EVENING
     Route: 058
     Dates: start: 20080801
  3. HUMULIN N [Suspect]
     Indication: DIABETES MELLITUS
  4. ANTIHYPERTENSIVES [Concomitant]
     Dosage: UNK, DAILY (1/D)
     Dates: start: 20100101

REACTIONS (1)
  - MYOCARDIAL INFARCTION [None]
